FAERS Safety Report 20905972 (Version 1)
Quarter: 2022Q2

REPORT INFORMATION
  Report Type: Report from Study
  Country: IE (occurrence: IE)
  Receive Date: 20220602
  Receipt Date: 20220602
  Transmission Date: 20220720
  Serious: Yes (Other)
  Sender: FDA-Public Use
  Company Number: IE-JNJFOC-20220562323

PATIENT
  Age: 54 Year
  Sex: Female

DRUGS (4)
  1. STELARA [Suspect]
     Active Substance: USTEKINUMAB
     Indication: Psoriasis
     Dosage: ADMINISTERED ON 30?MAY 2022
     Route: 058
     Dates: start: 20140812
  2. STELARA [Suspect]
     Active Substance: USTEKINUMAB
  3. ESTRADIOL [Concomitant]
     Active Substance: ESTRADIOL
     Route: 050
  4. SERTRALINE [Concomitant]
     Active Substance: SERTRALINE HYDROCHLORIDE

REACTIONS (2)
  - Wrist fracture [Not Recovered/Not Resolved]
  - Fall [Unknown]

NARRATIVE: CASE EVENT DATE: 20220501
